FAERS Safety Report 10366427 (Version 1)
Quarter: 2014Q3

REPORT INFORMATION
  Report Type: Report from Study
  Country: BR (occurrence: BR)
  Receive Date: 20140806
  Receipt Date: 20140806
  Transmission Date: 20150326
  Serious: Yes (Hospitalization, Other)
  Sender: FDA-Public Use
  Company Number: BR-ABBVIE-14K-020-1267315-00

PATIENT
  Sex: Female
  Weight: 55 kg

DRUGS (3)
  1. NIMESULIDE [Concomitant]
     Active Substance: NIMESULIDE
     Indication: PROPHYLAXIS
     Route: 048
     Dates: start: 20140704, end: 20140718
  2. HUMIRA [Suspect]
     Active Substance: ADALIMUMAB
     Indication: RHEUMATOID ARTHRITIS
     Route: 058
     Dates: start: 20120506
  3. NIMESULIDE [Concomitant]
     Active Substance: NIMESULIDE
     Indication: INFLAMMATION

REACTIONS (3)
  - Rheumatoid arthritis [Recovered/Resolved]
  - Joint range of motion decreased [Recovered/Resolved]
  - Gait disturbance [Recovered/Resolved]
